FAERS Safety Report 4692796-9 (Version None)
Quarter: 2005Q2

REPORT INFORMATION
  Report Type: 
  Country: None (occurrence: None)
  Receive Date: 20050617
  Receipt Date: 20050607
  Transmission Date: 20051028
  Serious: Yes (Other)
  Sender: FDA-Public Use
  Company Number: PHEH2005US06471

PATIENT
  Age: 69 Year
  Sex: Male

DRUGS (4)
  1. ELIDEL [Suspect]
     Indication: ECZEMA
     Dosage: 6 DAYS PER WEEK, BID
     Route: 061
  2. CLOBETASOL [Concomitant]
     Dosage: ONCE PER WEEK
  3. FLOMAX [Concomitant]
  4. PROSCAR [Concomitant]

REACTIONS (3)
  - HYPERKERATOSIS [None]
  - LICHENOID KERATOSIS [None]
  - SQUAMOUS CELL CARCINOMA OF SKIN [None]
